FAERS Safety Report 5049467-9 (Version None)
Quarter: 2006Q3

REPORT INFORMATION
  Report Type: 
  Country: None (occurrence: None)
  Receive Date: 20060711
  Receipt Date: 20060711
  Transmission Date: 20061208
  Serious: Yes (Other)
  Sender: FDA-Public Use
  Company Number: None

PATIENT
  Age: 46 Year
  Sex: Female
  Weight: 63.5036 kg

DRUGS (3)
  1. CAPZASIN HP  (CAPSAICIN) [Suspect]
     Indication: ARTHRITIS
     Dosage: ONCE TOP
     Route: 061
     Dates: start: 20060710, end: 20060710
  2. CAPZASIN HP  (CAPSAICIN) [Suspect]
     Indication: MUSCLE SPASMS
     Dosage: ONCE TOP
     Route: 061
     Dates: start: 20060710, end: 20060710
  3. CAPZASIN HP [Concomitant]

REACTIONS (3)
  - APPLICATION SITE REACTION [None]
  - ERYTHEMA [None]
  - SKIN BURNING SENSATION [None]
